FAERS Safety Report 20535551 (Version 1)
Quarter: 2022Q1

REPORT INFORMATION
  Report Type: Spontaneous
  Country: US (occurrence: FR)
  Receive Date: 20220302
  Receipt Date: 20220302
  Transmission Date: 20220423
  Serious: Yes (Other)
  Sender: FDA-Public Use
  Company Number: US-BAYER-2021-204408

PATIENT
  Age: 43 Year
  Sex: Male
  Weight: 112 kg

DRUGS (3)
  1. XARELTO [Suspect]
     Active Substance: RIVAROXABAN
     Indication: Venous thrombosis limb
     Dosage: 15 MG, BID
     Route: 048
  2. XARELTO [Suspect]
     Active Substance: RIVAROXABAN
     Dosage: 20 MG
     Route: 048
  3. MODERNA COVID-19 VACCINE [Concomitant]
     Active Substance: ELASOMERAN
     Dosage: UNK
     Dates: start: 20210729

REACTIONS (5)
  - Venous thrombosis limb [Unknown]
  - Fatigue [Unknown]
  - Pain in extremity [Unknown]
  - Inflammation [Unknown]
  - Arthralgia [Unknown]

NARRATIVE: CASE EVENT DATE: 20210729
